FAERS Safety Report 5585829-9 (Version None)
Quarter: 2007Q4

REPORT INFORMATION
  Report Type: 
  Country: None (occurrence: None)
  Receive Date: 20071205
  Receipt Date: 20061207
  Transmission Date: 20080405
  Serious: Yes (Other)
  Sender: FDA-Public Use
  Company Number: HQWYE704608DEC06

PATIENT
  Age: 58 Year
  Sex: Female

DRUGS (9)
  1. EFFEXOR XR [Suspect]
     Indication: DEPRESSION
     Dosage: 75 MG 1X PER 1 DAY, ORAL
     Route: 048
     Dates: start: 20060101
  2. PREMARIN [Suspect]
     Indication: VULVOVAGINAL DISORDER
     Dosage: 1 GRAM AT BED TIME, VAGINAL
     Route: 067
     Dates: start: 20060901, end: 20061008
  3. VERAPAMIL [Concomitant]
  4. DETROL [Concomitant]
  5. KEPPRA [Concomitant]
  6. TEGRETOL [Concomitant]
  7. LODINE [Concomitant]
  8. AGGRENOX [Concomitant]
  9. PROPRANOLOL [Concomitant]

REACTIONS (1)
  - VAGINAL HAEMORRHAGE [None]
